FAERS Safety Report 8060104-1 (Version None)
Quarter: 2012Q1

REPORT INFORMATION
  Report Type: 
  Country: None (occurrence: None)
  Receive Date: 20120120
  Receipt Date: 20120118
  Transmission Date: 20120608
  Serious: Yes (Other)
  Sender: FDA-Public Use
  Company Number: US-BAYER-2012-006169

PATIENT
  Sex: Female

DRUGS (3)
  1. OPTIMARK [Suspect]
  2. MAGNEVIST [Suspect]
  3. OMNISCAN [Suspect]

REACTIONS (5)
  - INJURY [None]
  - EMOTIONAL DISTRESS [None]
  - PAIN [None]
  - ANXIETY [None]
  - NEPHROGENIC SYSTEMIC FIBROSIS [None]
